FAERS Safety Report 23276146 (Version 1)
Quarter: 2023Q4

REPORT INFORMATION
  Report Type: Report from Study
  Country: ID (occurrence: None)
  Receive Date: 20231208
  Receipt Date: 20231208
  Transmission Date: 20240109
  Serious: Yes (Death, Hospitalization)
  Sender: FDA-Public Use
  Company Number: 2023A277730

PATIENT
  Age: 27919 Day
  Sex: Female

DRUGS (2)
  1. FASLODEX [Suspect]
     Active Substance: FULVESTRANT
     Indication: Breast cancer metastatic
     Route: 030
     Dates: start: 20230831
  2. FASLODEX [Suspect]
     Active Substance: FULVESTRANT
     Indication: HER2 negative breast cancer
     Route: 030
     Dates: start: 20230831

REACTIONS (1)
  - Death [Fatal]

NARRATIVE: CASE EVENT DATE: 20231118
